FAERS Safety Report 7659230-8 (Version None)
Quarter: 2011Q3

REPORT INFORMATION
  Report Type: 
  Country: None (occurrence: None)
  Receive Date: 20110805
  Receipt Date: 20110729
  Transmission Date: 20111222
  Serious: Yes (Other)
  Sender: FDA-Public Use
  Company Number: US-BAYER-2010-007907

PATIENT
  Age: 24 Year
  Sex: Female
  Weight: 78.912 kg

DRUGS (2)
  1. ADDERALL 5 [Concomitant]
  2. YAZ [Suspect]
     Indication: ACNE

REACTIONS (5)
  - ABDOMINAL PAIN [None]
  - PAIN [None]
  - INJURY [None]
  - GALLBLADDER NON-FUNCTIONING [None]
  - CHOLECYSTITIS CHRONIC [None]
